FAERS Safety Report 16683648 (Version 1)
Quarter: 2019Q3

REPORT INFORMATION
  Report Type: Spontaneous
  Country: US (occurrence: US)
  Receive Date: 20190808
  Receipt Date: 20190808
  Transmission Date: 20191004
  Serious: Yes (Other)
  Sender: FDA-Public Use
  Company Number: US-ROCHE-2367222

PATIENT
  Age: 50 Year
  Sex: Male
  Weight: 82.63 kg

DRUGS (1)
  1. OCREVUS [Suspect]
     Active Substance: OCRELIZUMAB
     Indication: SECONDARY PROGRESSIVE MULTIPLE SCLEROSIS
     Route: 065
     Dates: start: 201803

REACTIONS (5)
  - Pyrexia [Unknown]
  - Genital blister [Recovering/Resolving]
  - Urinary tract infection [Unknown]
  - Lip blister [Recovering/Resolving]
  - Penile blister [Recovering/Resolving]

NARRATIVE: CASE EVENT DATE: 201905
